FAERS Safety Report 5271656-9 (Version None)
Quarter: 2007Q1

REPORT INFORMATION
  Report Type: 
  Country: None (occurrence: None)
  Receive Date: 20070321
  Receipt Date: 20070312
  Transmission Date: 20070707
  Serious: Yes (Hospitalization, Other)
  Sender: FDA-Public Use
  Company Number: US-PFIZER INC-2007019347

PATIENT
  Sex: Female
  Weight: 81.6 kg

DRUGS (2)
  1. BEXTRA [Suspect]
     Indication: PAIN IN EXTREMITY
     Dates: start: 20020920, end: 20030425
  2. CELEBREX [Suspect]
     Indication: PAIN IN EXTREMITY
     Dosage: DAILY DOSE:200MG
     Dates: start: 20000414, end: 20040101

REACTIONS (3)
  - CARDIAC FAILURE CONGESTIVE [None]
  - MUSCULAR WEAKNESS [None]
  - PALPITATIONS [None]
